FAERS Safety Report 6371573-7 (Version None)
Quarter: 2009Q3

REPORT INFORMATION
  Report Type: 
  Country: None (occurrence: None)
  Receive Date: 20090923
  Receipt Date: 20071001
  Transmission Date: 20100115
  Serious: Yes (Other)
  Sender: FDA-Public Use
  Company Number: US-ASTRAZENECA-2007UW16482

PATIENT
  Age: 39 Year
  Sex: Female
  Weight: 102.1 kg

DRUGS (8)
  1. SEROQUEL [Suspect]
     Indication: INSOMNIA
     Route: 048
     Dates: start: 19980101, end: 20070401
  2. SEROQUEL [Suspect]
     Indication: BIPOLAR DISORDER
     Route: 048
     Dates: start: 19980101, end: 20070401
  3. SEROQUEL [Suspect]
     Dosage: 100 MG TO 300 MG
     Route: 048
     Dates: start: 20050404
  4. SEROQUEL [Suspect]
     Dosage: 100 MG TO 300 MG
     Route: 048
     Dates: start: 20050404
  5. ABILIFY [Concomitant]
  6. PREVACID 30 [Concomitant]
     Dates: start: 20011031
  7. METOCLOPRAMIDE [Concomitant]
     Dates: start: 20011031
  8. ASPIRIN [Concomitant]
     Dates: start: 20071205

REACTIONS (4)
  - DIABETES MELLITUS [None]
  - DIABETES MELLITUS INADEQUATE CONTROL [None]
  - DIABETIC COMA [None]
  - TYPE 2 DIABETES MELLITUS [None]
